FAERS Safety Report 6827504-6 (Version None)
Quarter: 2010Q3

REPORT INFORMATION
  Report Type: 
  Country: None (occurrence: None)
  Receive Date: 20100709
  Receipt Date: 20070117
  Transmission Date: 20110219
  Serious: No
  Sender: FDA-Public Use
  Company Number: US-PFIZER INC-2007005651

PATIENT
  Sex: Female
  Weight: 51.71 kg

DRUGS (2)
  1. CHANTIX [Suspect]
     Dates: start: 20070101, end: 20070117
  2. SYNTHROID [Concomitant]

REACTIONS (3)
  - MALAISE [None]
  - NAUSEA [None]
  - VOMITING [None]
